FAERS Safety Report 9416484 (Version 1)
Quarter: 2013Q3

REPORT INFORMATION
  Report Type: Spontaneous
  Country: US (occurrence: None)
  Receive Date: 20130719
  Receipt Date: 20130719
  Transmission Date: 20140515
  Serious: Yes (Hospitalization)
  Sender: FDA-Public Use
  Company Number: NSR_01196_2013

PATIENT
  Age: 21 Year
  Sex: Female

DRUGS (1)
  1. LAMOTRIGINE [Suspect]
     Indication: PRODUCT USED FOR UNKNOWN INDICATION
     Dosage: DF

REACTIONS (11)
  - Pyrexia [None]
  - Nausea [None]
  - Vomiting [None]
  - White blood cell count increased [None]
  - Drug reaction with eosinophilia and systemic symptoms [None]
  - Abdominal lymphadenopathy [None]
  - Retroperitoneal lymphadenopathy [None]
  - Face oedema [None]
  - Hyperthyroidism [None]
  - Hypothyroidism [None]
  - Type 1 diabetes mellitus [None]
